FAERS Safety Report 4535177-0 (Version None)
Quarter: 2004Q4

REPORT INFORMATION
  Report Type: 
  Country: None (occurrence: None)
  Receive Date: 20041222
  Receipt Date: 20041123
  Transmission Date: 20050328
  Serious: No
  Sender: FDA-Public Use
  Company Number: US-BRISTOL-MYERS SQUIBB COMPANY-12774378

PATIENT
  Age: 54 Year
  Sex: Female
  Weight: 73 kg

DRUGS (3)
  1. ULTRAVATE [Suspect]
     Indication: PSORIASIS
     Dosage: THERAPY DURATION,A FEW YEARS;,MORE RECENTLY 2X WEEKLY OR MAY USE IT FOR 2 SOLID WEEKS
     Route: 061
  2. DOVONEX [Suspect]
     Indication: PSORIASIS
     Route: 061
  3. SYNTHROID [Concomitant]

REACTIONS (2)
  - LEUKOPENIA [None]
  - SKIN ATROPHY [None]
